FAERS Safety Report 9786467 (Version 1)
Quarter: 2013Q4

REPORT INFORMATION
  Report Type: Spontaneous
  Country: GB (occurrence: None)
  Receive Date: 20131226
  Receipt Date: 20131226
  Transmission Date: 20140711
  Serious: Yes (Death, Other)
  Sender: FDA-Public Use
  Company Number: FK201305517

PATIENT
  Age: 5 Year
  Sex: Female
  Weight: 68 kg

DRUGS (5)
  1. ANASTROZOLE [Suspect]
     Indication: BREAST CANCER
     Dosage: 1MG, 1 IN 1 D, ORAL
     Route: 048
     Dates: start: 20130726, end: 20131018
  2. AMLODIPINE (AMLODIPINE) [Concomitant]
  3. ATENOLOL (ATENOLOL) [Concomitant]
  4. INDAPAMIDE (INDAPAMIDE) [Concomitant]
  5. RAMIPRIL (RAMIPRIL) [Concomitant]

REACTIONS (2)
  - Cerebrovascular accident [None]
  - Hair growth abnormal [None]
